FAERS Safety Report 21260460 (Version 2)
Quarter: 2022Q3

REPORT INFORMATION
  Report Type: Report from Study
  Country: DE (occurrence: DE)
  Receive Date: 20220826
  Receipt Date: 20220913
  Transmission Date: 20221027
  Serious: Yes (Hospitalization, Other)
  Sender: FDA-Public Use
  Company Number: DE-MYLANLABS-2022M1085827

PATIENT
  Sex: Female

DRUGS (28)
  1. STELARA [Suspect]
     Active Substance: USTEKINUMAB
     Indication: Rheumatoid arthritis
     Dosage: UNK
     Route: 065
  2. METHOTREXATE [Suspect]
     Active Substance: METHOTREXATE
     Indication: Rheumatoid arthritis
     Dosage: 7.5 MG UNK
     Route: 065
     Dates: start: 20110905
  3. METHOTREXATE [Suspect]
     Active Substance: METHOTREXATE
     Dosage: 7.5 MG, UNK
     Route: 065
     Dates: start: 20120301
  4. METHOTREXATE [Suspect]
     Active Substance: METHOTREXATE
     Dosage: 7.5 MG ,UNK
     Route: 065
     Dates: start: 20090603
  5. METHOTREXATE [Suspect]
     Active Substance: METHOTREXATE
     Dosage: 10 MG, UNK
     Route: 065
     Dates: start: 20180207
  6. METHOTREXATE [Suspect]
     Active Substance: METHOTREXATE
     Dosage: 7.5 MG UNK
     Route: 065
     Dates: start: 20090831
  7. METHOTREXATE [Suspect]
     Active Substance: METHOTREXATE
     Dosage: 10 MILLIGRAM
     Route: 065
     Dates: start: 20190206
  8. METHOTREXATE [Suspect]
     Active Substance: METHOTREXATE
     Dosage: 7.5 MG, UNK
     Route: 065
     Dates: start: 20100914
  9. METHOTREXATE [Suspect]
     Active Substance: METHOTREXATE
     Dosage: 7.5 MG, UNK
     Route: 065
     Dates: start: 20090309
  10. METHOTREXATE [Suspect]
     Active Substance: METHOTREXATE
     Dosage: 7.5 MG UNK
     Route: 065
     Dates: start: 20110307
  11. METHOTREXATE [Suspect]
     Active Substance: METHOTREXATE
     Dosage: 7.5 MG UNK
     Route: 065
     Dates: start: 20100302
  12. METHOTREXATE [Suspect]
     Active Substance: METHOTREXATE
     Dosage: 10 MILLIGRAM
     Route: 065
     Dates: start: 20180919
  13. METHOTREXATE [Suspect]
     Active Substance: METHOTREXATE
     Dosage: 7.5 MG, UNK
     Route: 065
     Dates: start: 20121018
  14. METHOTREXATE [Suspect]
     Active Substance: METHOTREXATE
     Dosage: 10 MG
     Route: 065
  15. TOCILIZUMAB [Suspect]
     Active Substance: TOCILIZUMAB
     Indication: Rheumatoid arthritis
     Dosage: UNK
     Route: 065
  16. TOCILIZUMAB [Suspect]
     Active Substance: TOCILIZUMAB
     Dosage: 800 MILLIGRAM
     Route: 065
  17. TOCILIZUMAB [Suspect]
     Active Substance: TOCILIZUMAB
     Dosage: 600 MILLIGRAM
     Route: 065
  18. TOCILIZUMAB [Suspect]
     Active Substance: TOCILIZUMAB
     Dosage: 800 MILLIGRAM
     Route: 065
     Dates: start: 200903
  19. TOCILIZUMAB [Suspect]
     Active Substance: TOCILIZUMAB
     Dosage: 360 MILLIGRAM
     Route: 065
  20. TOCILIZUMAB [Suspect]
     Active Substance: TOCILIZUMAB
     Dosage: 800 MG,UNK
     Route: 065
     Dates: start: 201309
  21. TOCILIZUMAB [Suspect]
     Active Substance: TOCILIZUMAB
     Dosage: 600MG,UNK
     Route: 065
     Dates: start: 20100914
  22. TOCILIZUMAB [Suspect]
     Active Substance: TOCILIZUMAB
     Dosage: 800 MG,UNK
     Route: 065
     Dates: start: 20120301
  23. TOCILIZUMAB [Suspect]
     Active Substance: TOCILIZUMAB
     Dosage: 800 MG,UNK
     Route: 065
     Dates: start: 20090831
  24. TOCILIZUMAB [Suspect]
     Active Substance: TOCILIZUMAB
     Dosage: 800 MG,UNK
     Route: 065
     Dates: start: 20090603
  25. TOCILIZUMAB [Suspect]
     Active Substance: TOCILIZUMAB
     Dosage: 800 MG,UNK
     Route: 065
     Dates: start: 20110905
  26. TOCILIZUMAB [Suspect]
     Active Substance: TOCILIZUMAB
     Dosage: UNK MG, UNK
     Route: 065
     Dates: start: 20100302
  27. TOCILIZUMAB [Suspect]
     Active Substance: TOCILIZUMAB
     Dosage: 800 MG,UNK
     Route: 065
     Dates: start: 20121018
  28. TOCILIZUMAB [Suspect]
     Active Substance: TOCILIZUMAB
     Dosage: 360 MG,UNK
     Route: 065
     Dates: start: 20110307

REACTIONS (9)
  - Impaired healing [Recovered/Resolved]
  - Gastroenteritis norovirus [Recovered/Resolved]
  - Diarrhoea infectious [Recovered/Resolved]
  - Upper respiratory tract infection [Recovered/Resolved]
  - Chronic obstructive pulmonary disease [Unknown]
  - Sleep apnoea syndrome [Unknown]
  - Device related infection [Unknown]
  - Fistula [Unknown]
  - Complication associated with device [Unknown]

NARRATIVE: CASE EVENT DATE: 20161129
